FAERS Safety Report 7649174-X (Version None)
Quarter: 2011Q3

REPORT INFORMATION
  Report Type: 
  Country: None (occurrence: None)
  Receive Date: 20110720
  Receipt Date: 20110714
  Transmission Date: 20111222
  Serious: Yes (Hospitalization)
  Sender: FDA-Public Use
  Company Number: 2011029185

PATIENT
  Age: 35 Year
  Sex: Female
  Weight: 98.8842 kg

DRUGS (2)
  1. BERINERT [Suspect]
     Indication: ENZYME ABNORMALITY
     Dosage: (500 UNIT VIAL; 2000 UNITS (40 ML, 4 ML/MIN) PRN INTRAVENOUS BOLUS), (INTRAVENOUS BOLUS)
     Route: 040
     Dates: start: 20100728
  2. HEPARIN [Concomitant]

REACTIONS (1)
  - THROMBOSIS [None]
